FAERS Safety Report 7316759-X (Version None)
Quarter: 2011Q1

REPORT INFORMATION
  Report Type: 
  Country: None (occurrence: None)
  Receive Date: 20110226
  Receipt Date: 20100809
  Transmission Date: 20110831
  Serious: No
  Sender: FDA-Public Use
  Company Number: US-ALLERGAN-1010314US

PATIENT
  Age: 53 Year
  Sex: Female

DRUGS (2)
  1. BOTOX COSMETIC [Suspect]
     Dosage: 75 UNITS, SINGLE
  2. BOTOX COSMETIC [Suspect]
     Indication: SKIN WRINKLING
     Dosage: 75 UNITS, SINGLE
     Route: 030
     Dates: start: 20091001

REACTIONS (9)
  - ALOPECIA [None]
  - FACIAL PARESIS [None]
  - FATIGUE [None]
  - MADAROSIS [None]
  - TOXICITY TO VARIOUS AGENTS [None]
  - HYPOAESTHESIA FACIAL [None]
  - SPEECH DISORDER [None]
  - LAGOPHTHALMOS [None]
  - NERVOUS SYSTEM DISORDER [None]
